FAERS Safety Report 24073852 (Version 3)
Quarter: 2024Q3

REPORT INFORMATION
  Report Type: Report from Study
  Country: US (occurrence: US)
  Receive Date: 20240710
  Receipt Date: 20240802
  Transmission Date: 20241017
  Serious: No
  Sender: DR REDDYS
  Company Number: US-E2BLSMVVAL-CLI/USA/24/0009935

PATIENT
  Age: 30 Year
  Sex: Female

DRUGS (2)
  1. ZENATANE [Suspect]
     Active Substance: ISOTRETINOIN
     Indication: Acne
     Dates: start: 20240306, end: 20240702
  2. ZENATANE [Suspect]
     Active Substance: ISOTRETINOIN
     Dates: start: 202310

REACTIONS (2)
  - Product dose omission issue [Unknown]
  - Circumstance or information capable of leading to medication error [Unknown]

NARRATIVE: CASE EVENT DATE: 20240514
